FAERS Safety Report 7318287-4 (Version None)
Quarter: 2011Q1

REPORT INFORMATION
  Report Type: 
  Country: None (occurrence: None)
  Receive Date: 20110228
  Receipt Date: 20110216
  Transmission Date: 20110831
  Serious: No
  Sender: FDA-Public Use
  Company Number: US-BIOGENIDEC-2011BI006167

PATIENT
  Age: 56 Year
  Sex: Female

DRUGS (3)
  1. AVONEX [Suspect]
     Route: 030
  2. AVONEX [Suspect]
     Route: 030
     Dates: end: 20101001
  3. AVONEX [Suspect]
     Indication: MULTIPLE SCLEROSIS
     Route: 030
     Dates: start: 19910101

REACTIONS (6)
  - FALL [None]
  - APHASIA [None]
  - MUSCLE TIGHTNESS [None]
  - HYPOTENSION [None]
  - MUSCLE RIGIDITY [None]
  - PERIPHERAL COLDNESS [None]
